FAERS Safety Report 8901728 (Version 1)
Quarter: 2012Q4

REPORT INFORMATION
  Report Type: Spontaneous
  Country: GB (occurrence: None)
  Receive Date: 20121101
  Receipt Date: 20121101
  Transmission Date: 20130627
  Serious: Yes (Other)
  Sender: FDA-Public Use
  Company Number: FK201203220

PATIENT
  Age: 71 Year
  Sex: Male

DRUGS (5)
  1. IRINOTECAN [Suspect]
     Indication: COLORECTAL CANCER METASTATIC
  2. FLUOROURACIL (FLUOROURACIL) [Suspect]
  3. FOLINIC ACID [Suspect]
  4. ELOXATIN [Suspect]
     Dosage: (not otherwise specified)
     Route: 042
     Dates: start: 20070822, end: 20071219
  5. CAPECITABINE (CAPECITABINE) [Concomitant]

REACTIONS (3)
  - Neurotoxicity [None]
  - Paraesthesia [None]
  - Areflexia [None]
